FAERS Safety Report 6568834-5 (Version None)
Quarter: 2010Q1

REPORT INFORMATION
  Report Type: 
  Country: None (occurrence: None)
  Receive Date: 20100203
  Receipt Date: 20090130
  Transmission Date: 20100710
  Serious: No
  Sender: FDA-Public Use
  Company Number: US-ABBOTT-09P-163-0501391-00

PATIENT
  Sex: Male
  Weight: 118.95 kg

DRUGS (6)
  1. TRICOR [Suspect]
     Indication: BLOOD TRIGLYCERIDES
     Dates: start: 20070401, end: 20070501
  2. TRICOR [Suspect]
     Dates: start: 20070901, end: 20071101
  3. TRICOR [Suspect]
     Indication: BLOOD TRIGLYCERIDES
     Dates: start: 20090106, end: 20090113
  4. TRICOR [Suspect]
     Dates: start: 20090115, end: 20090122
  5. LIPITOR [Suspect]
     Indication: DRUG USE FOR UNKNOWN INDICATION
     Dates: start: 20070401, end: 20070501
  6. PRAVACHOL [Suspect]
     Indication: DRUG USE FOR UNKNOWN INDICATION
     Dates: start: 20070901, end: 20071101

REACTIONS (6)
  - ABDOMINAL PAIN [None]
  - DIARRHOEA [None]
  - DYSPNOEA EXERTIONAL [None]
  - EXERCISE TOLERANCE DECREASED [None]
  - MYALGIA [None]
  - NOCTURNAL DYSPNOEA [None]
